FAERS Safety Report 5025856-3 (Version None)
Quarter: 2006Q2

REPORT INFORMATION
  Report Type: 
  Country: None (occurrence: None)
  Receive Date: 20060614
  Receipt Date: 20060519
  Transmission Date: 20061013
  Serious: Yes (Hospitalization)
  Sender: FDA-Public Use
  Company Number: FR-AVENTIS-200611914FR

PATIENT
  Age: 80 Year
  Sex: Male

DRUGS (7)
  1. AMARYL [Suspect]
     Indication: DIABETES MELLITUS NON-INSULIN-DEPENDENT
     Route: 048
     Dates: start: 20041101, end: 20050401
  2. AMARYL [Suspect]
     Route: 048
     Dates: start: 20050401
  3. AMARYL [Suspect]
     Route: 048
  4. METFORMIN [Concomitant]
     Route: 048
  5. COAPROVEL [Concomitant]
     Route: 048
  6. MEDIATENSYL [Concomitant]
     Route: 048
  7. ALLOPURINOL [Concomitant]
     Route: 048

REACTIONS (6)
  - DIARRHOEA [None]
  - FALL [None]
  - HIP FRACTURE [None]
  - INTERVERTEBRAL DISC SPACE NARROWING [None]
  - MALAISE [None]
  - SYNCOPE VASOVAGAL [None]
